FAERS Safety Report 5552059-6 (Version None)
Quarter: 2007Q4

REPORT INFORMATION
  Report Type: 
  Country: None (occurrence: None)
  Receive Date: 20071210
  Receipt Date: 20071130
  Transmission Date: 20080405
  Serious: Yes (Hospitalization)
  Sender: FDA-Public Use
  Company Number: URSO-2007-205

PATIENT
  Age: 70 Year
  Sex: Male

DRUGS (1)
  1. URSO (URSODEOXYCHOLIC ACID) TABLETS 100 MG [Suspect]
     Indication: JAUNDICE
     Dosage: 300 MG ORAL
     Route: 048
     Dates: start: 20040901, end: 20070801

REACTIONS (2)
  - LYMPHOCYTE STIMULATION TEST POSITIVE [None]
  - PULMONARY FIBROSIS [None]
